FAERS Safety Report 7149056 (Version 6)
Quarter: 2014Q4

REPORT INFORMATION
  Report Type: Report from Study
  Country: JP (occurrence: JP)
  Receive Date: 20091014
  Receipt Date: 20141103
  Transmission Date: 20150529
  Serious: Yes (Other)
  Sender: FDA-Public Use
  Company Number: PHHY2009JP41656

PATIENT
  Age: 76 Year
  Sex: Female
  Weight: 41 kg

DRUGS (17)
  1. KREMEZIN [Concomitant]
     Active Substance: ACTIVATED CHARCOAL
     Indication: PRODUCT USED FOR UNKNOWN INDICATION
     Dosage: 6 MG, UNK
     Route: 048
     Dates: start: 20090409, end: 20090828
  2. RED BLOOD CELLS, LEUCOCYTE DEPLETED [Concomitant]
     Active Substance: HUMAN RED BLOOD CELL
     Indication: PRODUCT USED FOR UNKNOWN INDICATION
     Dosage: UNK
     Route: 065
     Dates: start: 20020702, end: 20090521
  3. EPOGIN S6000 [Concomitant]
     Indication: PRODUCT USED FOR UNKNOWN INDICATION
     Dosage: 1 DF, UNK
     Route: 042
     Dates: start: 20090423
  4. ICL670A [Suspect]
     Active Substance: DEFERASIROX
     Dosage: 250 MG, PER DAY
     Route: 048
     Dates: start: 20080925, end: 20081023
  5. ICL670A [Suspect]
     Active Substance: DEFERASIROX
     Dosage: 125 MG, PER DAY
     Route: 048
     Dates: start: 20090122, end: 20090205
  6. PURSENNID [Concomitant]
     Active Substance: SENNOSIDES A AND B
     Indication: PRODUCT USED FOR UNKNOWN INDICATION
     Dosage: 2 DF, UNK
     Route: 048
     Dates: start: 20080828, end: 20081214
  7. NESP [Concomitant]
     Active Substance: DARBEPOETIN ALFA
     Indication: NEPHROGENIC ANAEMIA
     Dosage: UNK
     Route: 065
     Dates: start: 2009
  8. ICL670A [Suspect]
     Active Substance: DEFERASIROX
     Dosage: 125 MG, DAILY
     Route: 048
     Dates: start: 20090501, end: 20090511
  9. NU-LOTAN [Concomitant]
     Active Substance: LOSARTAN POTASSIUM
     Indication: PRODUCT USED FOR UNKNOWN INDICATION
     Dosage: 0.5 DF, UNK
     Route: 048
     Dates: start: 20090409, end: 20090828
  10. ICL670A [Suspect]
     Active Substance: DEFERASIROX
     Indication: APLASTIC ANAEMIA
     Dosage: 250 MG, PER DAY
     Route: 048
     Dates: start: 20080828, end: 20080903
  11. EPOGIN S6000 [Concomitant]
     Dosage: 2 DF, UNK
     Route: 042
     Dates: end: 20090828
  12. ICL670A [Suspect]
     Active Substance: DEFERASIROX
     Indication: IRON OVERLOAD
     Dosage: 375 MG, PER DAY
     Route: 048
     Dates: start: 20080904, end: 20080924
  13. ICL670A [Suspect]
     Active Substance: DEFERASIROX
     Dosage: 125 MG, DAILY
     Route: 048
     Dates: start: 20090206, end: 20090316
  14. ICL670A [Suspect]
     Active Substance: DEFERASIROX
     Dosage: 125 MG, DAILY
     Route: 048
     Dates: start: 20090602, end: 20090616
  15. ECULIZUMAB [Concomitant]
     Active Substance: ECULIZUMAB
     Indication: PAROXYSMAL NOCTURNAL HAEMOGLOBINURIA
     Dosage: UNK
     Route: 065
     Dates: start: 2010
  16. P MAGEN [Concomitant]
     Active Substance: ALUMINUM SILICATE\CALCIUM CARBONATE\DIASTASE\HERBALS\SODIUM BICARBONATE
     Indication: PRODUCT USED FOR UNKNOWN INDICATION
     Dosage: 3 MG, UNK
     Route: 048
     Dates: start: 20080828, end: 20090508
  17. LAC B [Concomitant]
     Active Substance: BIFIDOBACTERIUM SPP.
     Indication: PRODUCT USED FOR UNKNOWN INDICATION
     Dosage: 3 MG, UNK
     Route: 048
     Dates: start: 20081225, end: 20090107

REACTIONS (10)
  - Renal failure [Not Recovered/Not Resolved]
  - Blood urea increased [Not Recovered/Not Resolved]
  - Aspartate aminotransferase increased [Unknown]
  - Haemoglobin decreased [Unknown]
  - Red blood cell count decreased [Unknown]
  - Hyperphosphatasaemia [Not Recovered/Not Resolved]
  - Blood creatinine increased [Not Recovered/Not Resolved]
  - Blood alkaline phosphatase increased [Unknown]
  - Blood lactate dehydrogenase increased [Recovered/Resolved]
  - Renal disorder [Not Recovered/Not Resolved]

NARRATIVE: CASE EVENT DATE: 20080925
